FAERS Safety Report 17298917 (Version 1)
Quarter: 2020Q1

REPORT INFORMATION
  Report Type: Spontaneous
  Country: US (occurrence: US)
  Receive Date: 20200122
  Receipt Date: 20200122
  Transmission Date: 20200409
  Serious: No
  Sender: FDA-Public Use
  Company Number: US-MYLANLABS-2020M1002841

PATIENT
  Sex: Female
  Weight: 80 kg

DRUGS (1)
  1. LIDOCAINE PATCH [Suspect]
     Active Substance: LIDOCAINE
     Indication: BACK PAIN
     Dosage: UNK
     Route: 003
     Dates: end: 20200106

REACTIONS (3)
  - Product quality issue [Recovered/Resolved]
  - Off label use [Recovered/Resolved]
  - Product adhesion issue [Recovered/Resolved]
